FAERS Safety Report 25133710 (Version 2)
Quarter: 2025Q2

REPORT INFORMATION
  Report Type: Spontaneous
  Country: CN (occurrence: CN)
  Receive Date: 20250328
  Receipt Date: 20250408
  Transmission Date: 20250716
  Serious: No
  Sender: CSL BEHRING
  Company Number: CN-BEH-2025199813

PATIENT
  Age: 38 Year
  Sex: Male
  Weight: 76 kg

DRUGS (9)
  1. ALBURX [Suspect]
     Active Substance: ALBUMIN HUMAN
     Indication: Appendicitis
     Dosage: 20 G, OD
     Route: 041
     Dates: start: 20250226, end: 20250226
  2. ALBURX [Suspect]
     Active Substance: ALBUMIN HUMAN
     Indication: Type 2 diabetes mellitus
  3. ALBURX [Suspect]
     Active Substance: ALBUMIN HUMAN
     Indication: Abdominal pain
  4. ALBURX [Suspect]
     Active Substance: ALBUMIN HUMAN
     Indication: Cellulitis
  5. ALBURX [Suspect]
     Active Substance: ALBUMIN HUMAN
     Indication: Hypoproteinaemia
  6. ALBURX [Suspect]
     Active Substance: ALBUMIN HUMAN
     Indication: Hyponatraemia
  7. ALBURX [Suspect]
     Active Substance: ALBUMIN HUMAN
     Indication: Hypocalcaemia
  8. ALBURX [Suspect]
     Active Substance: ALBUMIN HUMAN
     Indication: Peritonitis
  9. SODIUM CHLORIDE [Concomitant]
     Active Substance: SODIUM CHLORIDE
     Indication: Hypoproteinaemia
     Route: 041
     Dates: start: 20250226

REACTIONS (2)
  - Diarrhoea [Recovered/Resolved]
  - Off label use [Unknown]

NARRATIVE: CASE EVENT DATE: 20250226
